FAERS Safety Report 8413601-0 (Version None)
Quarter: 2012Q2

REPORT INFORMATION
  Report Type: 
  Country: None (occurrence: None)
  Receive Date: 20120605
  Receipt Date: 20120523
  Transmission Date: 20120825
  Serious: Yes (Other)
  Sender: FDA-Public Use
  Company Number: AU-ROCHE-1072924

PATIENT
  Age: 67 Year
  Sex: Male

DRUGS (1)
  1. VEMURAFENIB [Suspect]
     Indication: MALIGNANT MELANOMA

REACTIONS (3)
  - PHOTOSENSITIVITY REACTION [None]
  - HYPERKERATOSIS [None]
  - SEBORRHOEIC DERMATITIS [None]
